FAERS Safety Report 15350256 (Version 1)
Quarter: 2018Q3

REPORT INFORMATION
  Report Type: Spontaneous
  Country: FR (occurrence: FR)
  Receive Date: 20180905
  Receipt Date: 20180905
  Transmission Date: 20181010
  Serious: Yes (Hospitalization)
  Sender: FDA-Public Use
  Company Number: FR-CONCORDIA PHARMACEUTICALS INC.-E2B_00016576

PATIENT
  Age: 33 Year
  Sex: Male

DRUGS (3)
  1. EXTRANASE [Suspect]
     Active Substance: BROMELAINS
     Indication: DENTAL IMPLANTATION
     Route: 048
     Dates: start: 20110225, end: 20110226
  2. BIRODOGYL [Suspect]
     Active Substance: METRONIDAZOLE\SPIRAMYCIN
     Indication: DENTAL IMPLANTATION
     Route: 048
     Dates: start: 20110225, end: 20110226
  3. PREDNISOLONE. [Suspect]
     Active Substance: PREDNISOLONE
     Indication: DENTAL IMPLANTATION
     Route: 048
     Dates: start: 20110225, end: 20110226

REACTIONS (3)
  - C-reactive protein increased [Recovered/Resolved]
  - Pyrexia [Recovered/Resolved]
  - Erythema [Recovered/Resolved]

NARRATIVE: CASE EVENT DATE: 20110226
